FAERS Safety Report 8583264 (Version 2)
Quarter: 2013Q2

REPORT INFORMATION
  Report Type: Spontaneous
  Country: US (occurrence: US)
  Receive Date: 20120529
  Receipt Date: 20130606
  Transmission Date: 20140414
  Serious: Yes (Death)
  Sender: FDA-Public Use
  Company Number: US-ELI_LILLY_AND_COMPANY-US201205006069

PATIENT
  Age: 39 Year
  Sex: Male

DRUGS (1)
  1. ZYPREXA RELPREVV [Suspect]
     Indication: SCHIZOPHRENIA

REACTIONS (1)
  - Myocardial infarction [Fatal]
